FAERS Safety Report 8231793-3 (Version None)
Quarter: 2012Q1

REPORT INFORMATION
  Report Type: 
  Country: None (occurrence: None)
  Receive Date: 20120323
  Receipt Date: 20120321
  Transmission Date: 20120608
  Serious: Yes (Hospitalization, Other)
  Sender: FDA-Public Use
  Company Number: FR-ROCHE-770571

PATIENT
  Age: 64 Year
  Sex: Female

DRUGS (12)
  1. METHOTREXATE [Concomitant]
  2. BONIVA [Suspect]
     Indication: PRODUCT USED FOR UNKNOWN INDICATION
     Dates: start: 20070927, end: 20090311
  3. FENOFIBRATE [Concomitant]
  4. ZOLPIDEM [Concomitant]
  5. CHONDROITIN SULFATE SODIUM [Concomitant]
  6. ESCITALOPRAM [Concomitant]
  7. VITAMIN D [Concomitant]
  8. FOLIC ACID [Concomitant]
  9. SPIRONOLACTONE [Concomitant]
  10. KETOPROFEN [Concomitant]
  11. PREDNISONE TAB [Suspect]
     Indication: SJOGREN'S SYNDROME
     Dates: start: 20020101, end: 20091201
  12. MORPHINE SULPHATE SR [Concomitant]

REACTIONS (3)
  - POST-TRAUMATIC STRESS DISORDER [None]
  - PERIODONTAL DISEASE [None]
  - DENTAL ALVEOLAR ANOMALY [None]
